FAERS Safety Report 16600509 (Version 2)
Quarter: 2021Q4

REPORT INFORMATION
  Report Type: Spontaneous
  Country: ES (occurrence: ES)
  Receive Date: 20190720
  Receipt Date: 20211012
  Transmission Date: 20220303
  Serious: Yes (Hospitalization, Other)
  Sender: FDA-Public Use
  Company Number: ES-AEMPS-516077

PATIENT
  Age: 86 Year
  Sex: Female

DRUGS (6)
  1. OMEPRAZOLE [Interacting]
     Active Substance: OMEPRAZOLE
     Indication: Gastritis prophylaxis
     Dosage: 20 MILLIGRAM, DAILY
     Route: 048
     Dates: start: 20180813, end: 20190220
  2. SINTROM [Interacting]
     Active Substance: ACENOCOUMAROL
     Indication: Atrial fibrillation
     Dosage: UNK UNK, DAILY
     Route: 048
     Dates: start: 2004, end: 20190210
  3. FUROSEMIDE [Concomitant]
     Active Substance: FUROSEMIDE
     Indication: Cardiac failure
     Dosage: 80 MILLIGRAM, DAILY
     Route: 048
     Dates: start: 20180813, end: 20190210
  4. DIGOXIN [Concomitant]
     Active Substance: DIGOXIN
     Indication: Atrial fibrillation
     Dosage: 0.5 MILLIGRAM, DAILY
     Route: 048
     Dates: start: 20180813
  5. CARVEDILOL [Concomitant]
     Active Substance: CARVEDILOL
     Indication: Cardiac failure
     Dosage: 25 MILLIGRAM, DAILY
     Route: 048
     Dates: start: 20180813, end: 20190210
  6. SPIRONOLACTONE [Concomitant]
     Active Substance: SPIRONOLACTONE
     Indication: Cardiac failure
     Dosage: 50 MILLIGRAM, DAILY
     Route: 048
     Dates: start: 20180813, end: 20190210

REACTIONS (1)
  - Upper gastrointestinal haemorrhage [Recovered/Resolved]

NARRATIVE: CASE EVENT DATE: 20190210
